FAERS Safety Report 15226603 (Version 1)
Quarter: 2018Q3

REPORT INFORMATION
  Report Type: Spontaneous
  Country: US (occurrence: US)
  Receive Date: 20180801
  Receipt Date: 20180801
  Transmission Date: 20181010
  Serious: Yes (Hospitalization)
  Sender: FDA-Public Use
  Company Number: PHHY2018US051539

PATIENT
  Age: 29 Year
  Sex: Female

DRUGS (3)
  1. RITUXIMAB. [Suspect]
     Active Substance: RITUXIMAB
     Indication: ACUTE LYMPHOCYTIC LEUKAEMIA
     Route: 065
  2. CYTARABINE. [Suspect]
     Active Substance: CYTARABINE
     Indication: ACUTE LYMPHOCYTIC LEUKAEMIA
     Route: 065
  3. METHOTREXATE. [Suspect]
     Active Substance: METHOTREXATE
     Indication: ACUTE LYMPHOCYTIC LEUKAEMIA
     Dosage: (HIGH DOSE) UNK
     Route: 065

REACTIONS (10)
  - Toxicity to various agents [Recovering/Resolving]
  - Systemic candida [Unknown]
  - Toxic epidermal necrolysis [Unknown]
  - Multiple organ dysfunction syndrome [Not Recovered/Not Resolved]
  - Blister [Unknown]
  - Pancytopenia [Unknown]
  - Rash erythematous [Unknown]
  - Enterococcal bacteraemia [Unknown]
  - Stomatitis [Unknown]
  - Fungal skin infection [Unknown]
